FAERS Safety Report 8337909-2 (Version None)
Quarter: 2012Q1

REPORT INFORMATION
  Report Type: 
  Country: None (occurrence: None)
  Receive Date: 20120329
  Receipt Date: 20100928
  Transmission Date: 20120608
  Serious: Yes (Other)
  Sender: FDA-Public Use
  Company Number: PHHY2010US69833

PATIENT
  Sex: Female

DRUGS (2)
  1. EXELON [Suspect]
     Indication: ANALGESIC THERAPY
     Dosage: 9.5 MG/24 HOURS, TRANSDERMAL, 4.6 MG, TRANSDERMAL
     Route: 062
     Dates: start: 20100827
  2. EXELON [Suspect]
     Indication: ANALGESIC THERAPY
     Dosage: 9.5 MG/24 HOURS, TRANSDERMAL, 4.6 MG, TRANSDERMAL
     Route: 062
     Dates: end: 20100914

REACTIONS (3)
  - RASH [None]
  - APPLICATION SITE PRURITUS [None]
  - APPLICATION SITE ERYTHEMA [None]
